FAERS Safety Report 19405142 (Version 1)
Quarter: 2021Q2

REPORT INFORMATION
  Report Type: Spontaneous
  Country: US (occurrence: US)
  Receive Date: 20210611
  Receipt Date: 20210611
  Transmission Date: 20210717
  Serious: Yes (Other)
  Sender: FDA-Public Use
  Company Number: None

PATIENT
  Age: 82 Year
  Sex: Female

DRUGS (2)
  1. ERVIDGE [Concomitant]
     Dates: start: 20210219, end: 20210611
  2. ERIVEDGE [Suspect]
     Active Substance: VISMODEGIB
     Indication: BASAL CELL CARCINOMA
     Route: 048

REACTIONS (3)
  - Anosmia [None]
  - Alopecia [None]
  - Ageusia [None]

NARRATIVE: CASE EVENT DATE: 20210611
